FAERS Safety Report 9036898 (Version 2)
Quarter: 2013Q1

REPORT INFORMATION
  Report Type: Spontaneous
  Country: US (occurrence: None)
  Receive Date: 20121221
  Receipt Date: 20130114
  Transmission Date: 20140127
  Serious: Yes (Hospitalization)
  Sender: FDA-Public Use
  Company Number: 2012PROUSA02372

PATIENT
  Age: 69 Year
  Sex: Male
  Weight: 112 kg

DRUGS (7)
  1. PROVENGE [Suspect]
     Indication: PROSTATE CANCER METASTATIC
     Route: 042
     Dates: start: 20121008, end: 20121008
  2. PLAVIX (CLOPIDOGREL BISULFATE) [Concomitant]
  3. NITROGLYCERIN (GLYCERYL TRINITRATE) [Concomitant]
  4. FLOMAX (TAMSULOSIN HYDROCHLORIDE) [Concomitant]
  5. SPIRIVA (TIOTROPIUM BROMIDE) [Concomitant]
  6. LORTAB (HYDROCODONE BITARTRATE, PARACETAMOL, PROMETHAZINE HYDROCHLORIDE) [Concomitant]
  7. SYMBICORT (BUDESONIDE,  FORMOTEROL FUMARATE) [Concomitant]

REACTIONS (8)
  - Pneumonia [None]
  - Fall [None]
  - Influenza [None]
  - Dizziness [None]
  - Pain in extremity [None]
  - Asthenia [None]
  - Chronic obstructive pulmonary disease [None]
  - Condition aggravated [None]
